FAERS Safety Report 8276111-X (Version None)
Quarter: 2012Q2

REPORT INFORMATION
  Report Type: 
  Country: None (occurrence: None)
  Receive Date: 20120412
  Receipt Date: 20120329
  Transmission Date: 20120825
  Serious: Yes (Life-Threatening)
  Sender: FDA-Public Use
  Company Number: JP-MYLANLABS-2012S1004621

PATIENT
  Age: 73 Year
  Sex: Female
  Weight: 50 kg

DRUGS (14)
  1. BIO-THREE [Concomitant]
     Indication: DIARRHOEA
     Route: 048
     Dates: start: 20101109
  2. METHYCOBAL [Concomitant]
     Indication: VIITH NERVE PARALYSIS
     Route: 048
     Dates: start: 20101109
  3. LOXONIN [Concomitant]
     Indication: PAIN
     Route: 048
  4. BUPRENORPHINE HCL [Concomitant]
     Indication: PAIN
     Route: 054
     Dates: start: 20101102, end: 20101121
  5. GASMOTIN [Concomitant]
     Indication: ILEUS PARALYTIC
     Route: 048
     Dates: start: 20101109
  6. INTRALIPID 10% [Concomitant]
     Indication: NUTRITIONAL SUPPORT
     Route: 041
  7. FOIPAN [Concomitant]
     Indication: GASTROOESOPHAGEAL REFLUX DISEASE
     Route: 048
     Dates: start: 20101109
  8. LANSOPRAZOLE [Concomitant]
     Indication: GASTROOESOPHAGEAL REFLUX DISEASE
     Route: 041
  9. ZYVOX [Suspect]
     Route: 041
     Dates: start: 20101118, end: 20101207
  10. ADENOSINE [Concomitant]
     Indication: VIITH NERVE PARALYSIS
     Route: 048
     Dates: start: 20101109
  11. BERIZYM /00517401/ [Concomitant]
     Indication: DYSPEPSIA
     Route: 048
     Dates: start: 20101109, end: 20101122
  12. CEREKINON [Concomitant]
     Indication: GASTROINTESTINAL MOTILITY DISORDER
     Route: 048
  13. VANCOMYCIN [Suspect]
     Indication: STAPHYLOCOCCAL INFECTION
     Route: 041
     Dates: start: 20101110, end: 20101116
  14. ZYVOX [Suspect]
     Indication: STAPHYLOCOCCAL INFECTION
     Route: 041
     Dates: start: 20101116, end: 20101117

REACTIONS (3)
  - ANAEMIA [None]
  - RENAL IMPAIRMENT [None]
  - HYPERKALAEMIA [None]
